FAERS Safety Report 23153601 (Version 1)
Quarter: 2023Q4

REPORT INFORMATION
  Report Type: Spontaneous
  Country: ES (occurrence: ES)
  Receive Date: 20231107
  Receipt Date: 20231107
  Transmission Date: 20240109
  Serious: Yes (Other)
  Sender: FDA-Public Use
  Company Number: None

PATIENT
  Age: 35 Year
  Sex: Female
  Weight: 61 kg

DRUGS (2)
  1. CHORIOGONADOTROPIN ALFA [Suspect]
     Active Substance: CHORIOGONADOTROPIN ALFA
     Indication: Infertility female
     Dosage: 1 SINGLE DOSE
     Route: 058
     Dates: start: 20231011, end: 20231012
  2. GONAL-F [Suspect]
     Active Substance: FOLLITROPIN
     Indication: Infertility female
     Dosage: 1 PREFILLED PEN 0.75 ML
     Dates: start: 20231004, end: 20231010

REACTIONS (5)
  - Oropharyngeal discomfort [Recovered/Resolved]
  - Dyspepsia [Recovered/Resolved]
  - Erythema [Recovered/Resolved]
  - Dysgeusia [Recovered/Resolved]
  - Cough [Recovered/Resolved]

NARRATIVE: CASE EVENT DATE: 20231011
